FAERS Safety Report 15152109 (Version 1)
Quarter: 2018Q3

REPORT INFORMATION
  Report Type: Spontaneous
  Country: CH (occurrence: CH)
  Receive Date: 20180717
  Receipt Date: 20180717
  Transmission Date: 20181010
  Serious: Yes (Other)
  Sender: FDA-Public Use
  Company Number: CH-TEVA-728648ISR

PATIENT
  Age: 48 Year
  Sex: Male

DRUGS (6)
  1. SIMVASTATIN?MEPHA LACTAB 40MG [Concomitant]
     Dosage: 20 MILLIGRAM DAILY; 0?0?0.5
     Route: 048
     Dates: start: 20161228
  2. PERINDOPRIL?MEPHA N 5MG [Suspect]
     Active Substance: PERINDOPRIL
     Indication: METABOLIC SYNDROME
     Dosage: 5 MILLIGRAM DAILY; 1?0?0. TAKEN 3?4 DAYS THEN INCREASED TO 10 MG/DAY
     Route: 048
     Dates: start: 20161228, end: 201701
  3. PERINDOPRIL?MEPHA N 5MG [Suspect]
     Active Substance: PERINDOPRIL
     Indication: HYPERTENSION
     Dosage: 10 MILLIGRAM DAILY; 2?0?0
     Route: 048
     Dates: start: 201701, end: 201704
  4. METFORMIN?MEPHA LACTAB 1000MG [Concomitant]
     Dosage: 1500 MILLIGRAM DAILY; 0.5?0.5?0.5
     Route: 048
     Dates: start: 201701
  5. METFORMIN?MEPHA LACTAB 1000MG [Concomitant]
     Dosage: 2000 MILLIGRAM DAILY; 0.5?0?0.5
     Route: 048
     Dates: start: 20161228, end: 201701
  6. AMLODIPINE [Concomitant]
     Active Substance: AMLODIPINE BESYLATE
     Route: 048
     Dates: start: 201703

REACTIONS (1)
  - Vision blurred [Unknown]

NARRATIVE: CASE EVENT DATE: 20161230
